FAERS Safety Report 7826422-4 (Version None)
Quarter: 2011Q4

REPORT INFORMATION
  Report Type: 
  Country: None (occurrence: None)
  Receive Date: 20111020
  Receipt Date: 20111011
  Transmission Date: 20120403
  Serious: No
  Sender: FDA-Public Use
  Company Number: US-BIOGENIDEC-2011BI038912

PATIENT
  Sex: Female

DRUGS (3)
  1. AVONEX [Suspect]
     Indication: MULTIPLE SCLEROSIS
     Route: 030
     Dates: start: 20100406
  2. AVONEX [Suspect]
     Route: 030
     Dates: start: 20030101, end: 20060101
  3. AVONEX [Suspect]
     Route: 030
     Dates: start: 19971101, end: 20030101

REACTIONS (7)
  - OEDEMA PERIPHERAL [None]
  - FOOT FRACTURE [None]
  - LIMB INJURY [None]
  - PYREXIA [None]
  - SKIN WARM [None]
  - BACK PAIN [None]
  - FALL [None]
